FAERS Safety Report 18990902 (Version 5)
Quarter: 2022Q4

REPORT INFORMATION
  Report Type: Report from Study
  Country: JP (occurrence: JP)
  Receive Date: 20210310
  Receipt Date: 20221229
  Transmission Date: 20230113
  Serious: Yes (Hospitalization)
  Sender: FDA-Public Use
  Company Number: JP-SA-2021SA075633

PATIENT
  Age: 65 Year
  Sex: Male
  Weight: 81.7 kg

DRUGS (26)
  1. SARILUMAB [Suspect]
     Active Substance: SARILUMAB
     Indication: Rheumatoid arthritis
     Dosage: 200 MG, QOW
     Route: 058
     Dates: start: 20201006, end: 20201117
  2. PREDNISOLONE [Suspect]
     Active Substance: PREDNISOLONE
     Indication: Rheumatoid arthritis
     Dosage: 1 DF, QD AFTER BREAKFAST
     Route: 048
     Dates: start: 20170207
  3. PREDNISOLONE [Suspect]
     Active Substance: PREDNISOLONE
     Indication: Rheumatoid arthritis
     Dosage: 8 MG, QD
     Route: 048
     Dates: start: 20150728
  4. PREDNISOLONE [Suspect]
     Active Substance: PREDNISOLONE
     Dosage: 3 DF, QD AFTER BREAKFAST
     Route: 048
  5. IGURATIMOD [Suspect]
     Active Substance: IGURATIMOD
     Indication: Rheumatoid arthritis
     Dosage: 2 DF, BID (AFTER BREAKFAST AND DINNER)
     Route: 048
     Dates: start: 201911
  6. KETOPROFEN [Suspect]
     Active Substance: KETOPROFEN
     Indication: Rheumatoid arthritis
     Dosage: BID
     Route: 061
     Dates: start: 20201020
  7. MAGNESIUM OXIDE [Suspect]
     Active Substance: MAGNESIUM OXIDE
     Indication: Constipation
     Dosage: 2 DF, BID AFTER BREAKFAST AND DINNER
     Route: 048
  8. LOXOPROFEN SODIUM [Suspect]
     Active Substance: LOXOPROFEN SODIUM
     Indication: Rheumatoid arthritis
     Dosage: 3 DF, TID AFTER BREAKFAST, LUNCH, AND DINNER
     Route: 048
  9. METHANIAZIDE SODIUM [Suspect]
     Active Substance: METHANIAZIDE SODIUM
     Indication: Tuberculosis
     Dosage: 3 DF, QD AFTER BREAKFAST
     Route: 048
     Dates: start: 20200623, end: 20210531
  10. RIFAMPIN [Suspect]
     Active Substance: RIFAMPIN
     Indication: Tuberculosis
     Dosage: 3 DF, QD AFTER BREAKFAST
     Route: 048
     Dates: start: 20200623, end: 20210531
  11. ASPIRIN [Suspect]
     Active Substance: ASPIRIN
     Indication: Angina pectoris
     Dosage: 1 DF, QD AFTER BREAKFAST
     Route: 048
  12. AMLODIPINE\TELMISARTAN [Suspect]
     Active Substance: AMLODIPINE\TELMISARTAN
     Indication: Hypertension
     Dosage: 1 DF, QD AFTER BREAKFAST
     Route: 048
  13. PITAVASTATIN CALCIUM [Suspect]
     Active Substance: PITAVASTATIN CALCIUM
     Indication: Dyslipidaemia
     Dosage: 1 DF, QD AFTER BREAKFAST
     Route: 048
  14. METFORMIN HYDROCHLORIDE [Suspect]
     Active Substance: METFORMIN HYDROCHLORIDE
     Indication: Diabetes mellitus
     Dosage: 2 DF, BID AFTER BREAKFAST AND DINNER
     Route: 048
  15. ESOMEPRAZOLE MAGNESIUM [Suspect]
     Active Substance: ESOMEPRAZOLE MAGNESIUM
     Indication: Gastrooesophageal reflux disease
     Dosage: 1 DF, QD AFTER DINNER
     Route: 048
  16. ELOBIXIBAT [Suspect]
     Active Substance: ELOBIXIBAT
     Indication: Constipation
     Dosage: 2 DF, QD AT BEDTIME
     Route: 048
     Dates: start: 20201104
  17. URSODIOL [Suspect]
     Active Substance: URSODIOL
     Indication: Gamma-glutamyltransferase increased
     Dosage: 6 DF, TID AFTER BREAKFAST, LUNCH, AND DINNER
     Route: 048
     Dates: start: 20200707
  18. LIMETHASON [DEXAMETHASONE PALMITATE] [Concomitant]
     Indication: Rheumatoid arthritis
     Dosage: 2.5 MG, PRN
     Route: 042
     Dates: start: 20200114
  19. TELMISARTAN [Concomitant]
     Active Substance: TELMISARTAN
     Indication: Hypertension
     Dosage: 1 TABLET (80 MG)/1 X AFTER BREAKFAST
     Route: 048
  20. NIFEDIPINE [Concomitant]
     Active Substance: NIFEDIPINE
     Indication: Hypertension
     Dosage: 2 TABLETS (40 MG PER TABLET) 2 X AFTER BREAKFAST AND DINNER
     Route: 048
  21. KETOPROFEN [Concomitant]
     Active Substance: KETOPROFEN
     Indication: Rheumatoid arthritis
     Dosage: UNK UNK, QD
     Route: 061
     Dates: end: 20220415
  22. CLOBETASOL [Concomitant]
     Active Substance: CLOBETASOL
     Indication: Eczema
     Dosage: UNK, QD, SCALP
     Route: 061
     Dates: start: 20201215, end: 2022
  23. BETAMETHASONE BUTYRATE PROPIONATE [Concomitant]
     Active Substance: BETAMETHASONE BUTYRATE PROPIONATE
     Indication: Eczema
     Dosage: UNK, QD, TRUNK
     Route: 061
     Dates: end: 2022
  24. PANDEL [Concomitant]
     Active Substance: HYDROCORTISONE PROBUTATE
     Indication: Eczema
     Dosage: UNK, QD, HEAD
     Route: 061
     Dates: end: 2022
  25. FLUOROMETHOLONE [Concomitant]
     Active Substance: FLUOROMETHOLONE
     Indication: Drug hypersensitivity
     Dosage: UNK, AS APPROPRIATE
     Route: 047
     Dates: start: 20210818, end: 2022
  26. DIQUAFOSOL TETRASODIUM [Concomitant]
     Active Substance: DIQUAFOSOL TETRASODIUM
     Indication: Dry eye
     Dosage: UNK, AS APPROPRIATE
     Route: 047

REACTIONS (5)
  - Joint tuberculosis [Recovering/Resolving]
  - Bone tuberculosis [Recovering/Resolving]
  - Oral candidiasis [Recovering/Resolving]
  - COVID-19 [Recovering/Resolving]
  - Pyrexia [Recovering/Resolving]

NARRATIVE: CASE EVENT DATE: 20201110
